FAERS Safety Report 6366841-9 (Version None)
Quarter: 2009Q3

REPORT INFORMATION
  Report Type: 
  Country: None (occurrence: None)
  Receive Date: 20090921
  Receipt Date: 20090917
  Transmission Date: 20100115
  Serious: Yes (Hospitalization)
  Sender: FDA-Public Use
  Company Number: PL-AMGEN-UK358379

PATIENT
  Sex: Female

DRUGS (10)
  1. ROMIPLOSTIM [Suspect]
     Indication: IDIOPATHIC THROMBOCYTOPENIC PURPURA
     Route: 058
     Dates: start: 20090617
  2. SOLU-MEDROL [Concomitant]
  3. CEFTRIAXONE [Concomitant]
  4. METYPRED [Concomitant]
  5. CETIRIZINE HCL [Concomitant]
     Route: 065
  6. POTASSIUM CHLORIDE [Concomitant]
     Route: 065
  7. OMEPRAZOLE [Concomitant]
     Route: 065
  8. DEXAMETHASONE [Concomitant]
     Route: 065
  9. HYDROCORTISONE [Concomitant]
     Route: 065
  10. CYCLOSPORINE [Concomitant]
     Route: 065

REACTIONS (1)
  - PEMPHIGUS [None]
